FAERS Safety Report 4598757-2 (Version None)
Quarter: 2005Q1

REPORT INFORMATION
  Report Type: 
  Country: None (occurrence: None)
  Receive Date: 20050304
  Receipt Date: 20041220
  Transmission Date: 20050727
  Serious: Yes (Other)
  Sender: FDA-Public Use
  Company Number: GB-BRISTOL-MYERS SQUIBB COMPANY-12827564

PATIENT
  Age: 45 Year
  Sex: Male

DRUGS (6)
  1. ARIPIPRAZOLE [Suspect]
     Indication: MENTAL DISORDER
     Route: 048
  2. LORAZEPAM [Concomitant]
  3. PROPRANOLOL [Concomitant]
  4. ANTABUSE [Concomitant]
  5. PHENELZINE [Concomitant]
  6. ZOPICLONE [Concomitant]
     Dosage: NOCTE

REACTIONS (1)
  - ORTHOPNOEA [None]
